FAERS Safety Report 24245760 (Version 4)
Quarter: 2025Q1

REPORT INFORMATION
  Report Type: Report from Study
  Country: US (occurrence: US)
  Receive Date: 20240824
  Receipt Date: 20250207
  Transmission Date: 20250409
  Serious: Yes (Other)
  Sender: ABBVIE
  Company Number: US-ABBVIE-5890522

PATIENT
  Sex: Female
  Weight: 83.914 kg

DRUGS (1)
  1. SKYRIZI [Suspect]
     Active Substance: RISANKIZUMAB-RZAA
     Indication: Psoriasis
     Route: 058
     Dates: start: 202308, end: 20240715

REACTIONS (4)
  - Malignant melanoma [Not Recovered/Not Resolved]
  - Melanocytic naevus [Recovered/Resolved]
  - Metastatic malignant melanoma [Unknown]
  - Psoriasis [Unknown]

NARRATIVE: CASE EVENT DATE: 20240801
